FAERS Safety Report 18773274 (Version 1)
Quarter: 2021Q1

REPORT INFORMATION
  Report Type: Spontaneous
  Country: US (occurrence: US)
  Receive Date: 20210122
  Receipt Date: 20210122
  Transmission Date: 20210419
  Serious: No
  Sender: FDA-Public Use
  Company Number: None

PATIENT
  Sex: Male

DRUGS (13)
  1. PANTOPRAZOLE [Concomitant]
     Active Substance: PANTOPRAZOLE
  2. PROAIR HFA [Concomitant]
     Active Substance: ALBUTEROL SULFATE
  3. COENZYME Q10 [Concomitant]
     Active Substance: DIETARY SUPPLEMENT\UBIDECARENONE
  4. NAC [Concomitant]
  5. PAROXETINE. [Concomitant]
     Active Substance: PAROXETINE
  6. CENTRIUM [Concomitant]
  7. PREDNISONE. [Concomitant]
     Active Substance: PREDNISONE
  8. ALBUTEROL. [Concomitant]
     Active Substance: ALBUTEROL
  9. DOXEPIN HCL [Concomitant]
     Active Substance: DOXEPIN HYDROCHLORIDE
  10. SPIRIVA [Concomitant]
     Active Substance: TIOTROPIUM BROMIDE MONOHYDRATE
  11. TAMSULOSIN [Concomitant]
     Active Substance: TAMSULOSIN
  12. VALSARARATAN [Concomitant]
  13. ESBRIET [Suspect]
     Active Substance: PIRFENIDONE
     Indication: IDIOPATHIC PULMONARY FIBROSIS
     Dosage: ?          OTHER FREQUENCY:THREE TIMES A DAY;?
     Route: 048
     Dates: start: 20201104

REACTIONS (6)
  - Dry throat [None]
  - Weight decreased [None]
  - Parosmia [None]
  - Decreased appetite [None]
  - Lip dry [None]
  - Pneumonia [None]
